FAERS Safety Report 24270331 (Version 1)
Quarter: 2024Q3

REPORT INFORMATION
  Report Type: Spontaneous
  Country: FR (occurrence: FR)
  Receive Date: 20240830
  Receipt Date: 20240830
  Transmission Date: 20241017
  Serious: Yes (Other)
  Sender: TEVA
  Company Number: None

PATIENT
  Age: 21 Year
  Sex: Male

DRUGS (2)
  1. MIRTAZAPINE [Suspect]
     Active Substance: MIRTAZAPINE
     Indication: Product used for unknown indication
     Dosage: 1 TAB OF 15 MG ONCE, MIRTAZAPINE TEVA
     Route: 048
     Dates: start: 20240711, end: 20240711
  2. ZUCLOPENTHIXOL [Suspect]
     Active Substance: ZUCLOPENTHIXOL
     Indication: Product used for unknown indication
     Dosage: 1 TAB AT 25 MG
     Route: 048
     Dates: start: 20240711, end: 20240711

REACTIONS (2)
  - Drug use disorder [Unknown]
  - Neuroleptic malignant syndrome [Unknown]

NARRATIVE: CASE EVENT DATE: 20240711
